FAERS Safety Report 14465797 (Version 1)
Quarter: 2018Q1

REPORT INFORMATION
  Report Type: Spontaneous
  Country: JP (occurrence: JP)
  Receive Date: 20180131
  Receipt Date: 20180131
  Transmission Date: 20180509
  Serious: Yes (Death)
  Sender: FDA-Public Use
  Company Number: JP-MALLINCKRODT-T201800244

PATIENT
  Age: 33 Year
  Sex: Female
  Weight: 43 kg

DRUGS (14)
  1. METHADONE [Suspect]
     Active Substance: METHADONE HYDROCHLORIDE
     Dosage: 10 MG, (ONE TIME DOSE 10 MG)
     Route: 048
     Dates: start: 20151023, end: 20151108
  2. TAKEPRON [Concomitant]
     Active Substance: LANSOPRAZOLE
     Indication: PRODUCT USED FOR UNKNOWN INDICATION
     Dosage: 30 MG
     Route: 048
     Dates: end: 20151030
  3. RHYTHMY [Concomitant]
     Active Substance: RILMAZAFONE HYDROCHLORIDE
     Indication: PRODUCT USED FOR UNKNOWN INDICATION
     Dosage: 1 MG
     Route: 048
     Dates: end: 20151103
  4. FENTANYL. [Concomitant]
     Active Substance: FENTANYL
     Indication: ANALGESIC THERAPY
     Dosage: 0.075 MG, PRN (AS NEEDED)
     Route: 051
     Dates: start: 20151015, end: 20151018
  5. METHADONE [Suspect]
     Active Substance: METHADONE HYDROCHLORIDE
     Indication: PRODUCT USED FOR UNKNOWN INDICATION
     Dosage: 10 MG (ONE TIME DOSE 10 MG)
     Route: 048
     Dates: start: 20151016, end: 20151022
  6. MAGLAX [Concomitant]
     Active Substance: MAGNESIUM OXIDE
     Indication: PRODUCT USED FOR UNKNOWN INDICATION
     Dosage: 660 MG
     Route: 048
     Dates: end: 20151030
  7. OXINORM (OXYCODONE HYDROCHLORIDE) [Concomitant]
     Active Substance: OXYCODONE HYDROCHLORIDE
     Indication: ANALGESIC THERAPY
     Dosage: 2.5 MG, PRN
     Route: 048
     Dates: start: 20151019
  8. FENTANYL. [Concomitant]
     Active Substance: FENTANYL
     Dosage: 1.2 MG
     Route: 051
     Dates: start: 20151017, end: 20151017
  9. FENTANYL. [Concomitant]
     Active Substance: FENTANYL
     Indication: ANALGESIC THERAPY
     Dosage: 1.8 MG
     Route: 051
     Dates: start: 20151013, end: 20151016
  10. FENTANYL. [Concomitant]
     Active Substance: FENTANYL
     Dosage: 0.6 MG
     Route: 051
     Dates: start: 20151018, end: 20151018
  11. DEPAS [Concomitant]
     Active Substance: ETIZOLAM
     Indication: PRODUCT USED FOR UNKNOWN INDICATION
     Dosage: 0.5 MG
     Route: 048
     Dates: end: 20151030
  12. LYRICA [Concomitant]
     Active Substance: PREGABALIN
     Indication: PRODUCT USED FOR UNKNOWN INDICATION
     Dosage: 50 MG
     Route: 048
     Dates: start: 20151014, end: 20151020
  13. VOLTAREN [Concomitant]
     Active Substance: DICLOFENAC SODIUM
     Indication: ANALGESIC THERAPY
     Dosage: 25 MG
     Route: 048
     Dates: end: 20151030
  14. LACB-R [Concomitant]
     Indication: PRODUCT USED FOR UNKNOWN INDICATION
     Dosage: 0.3 MG
     Route: 048
     Dates: end: 20151030

REACTIONS (2)
  - Cervix carcinoma [Fatal]
  - Somnolence [Not Recovered/Not Resolved]

NARRATIVE: CASE EVENT DATE: 20151020
